FAERS Safety Report 17071237 (Version 2)
Quarter: 2019Q4

REPORT INFORMATION
  Report Type: Spontaneous
  Country: GB (occurrence: FI)
  Receive Date: 20191125
  Receipt Date: 20191212
  Transmission Date: 20200122
  Serious: Yes (Hospitalization)
  Sender: FDA-Public Use
  Company Number: FI-BAYER-2019-206962

PATIENT
  Age: 29 Year
  Sex: Female

DRUGS (2)
  1. HISTEC [Concomitant]
     Active Substance: CETIRIZINE HYDROCHLORIDE
     Dosage: 10 MG/24HR
     Route: 048
  2. KYLEENA [Suspect]
     Active Substance: LEVONORGESTREL
     Indication: CONTRACEPTION
     Dosage: 17.5 MCG/24HR, CONT
     Route: 015
     Dates: start: 20180201, end: 20191025

REACTIONS (3)
  - Uterine haematoma [Not Recovered/Not Resolved]
  - Abortion of ectopic pregnancy [Not Recovered/Not Resolved]
  - Ectopic pregnancy with contraceptive device [Not Recovered/Not Resolved]

NARRATIVE: CASE EVENT DATE: 20191025
